FAERS Safety Report 4631141-1 (Version None)
Quarter: 2005Q2

REPORT INFORMATION
  Report Type: 
  Country: None (occurrence: None)
  Receive Date: 20050407
  Receipt Date: 20050407
  Transmission Date: 20051028
  Serious: No
  Sender: FDA-Public Use
  Company Number: None

PATIENT
  Age: 83 Year
  Sex: Female

DRUGS (1)
  1. ZOSYN [Suspect]
     Indication: INFECTION
     Dosage: 2.25 GM   Q 6HRS   INTRAVENOU
     Route: 042
     Dates: start: 20040117, end: 20040218

REACTIONS (1)
  - PLATELET COUNT DECREASED [None]
